FAERS Safety Report 9076525 (Version 1)
Quarter: 2013Q1

REPORT INFORMATION
  Report Type: Spontaneous
  Country: US (occurrence: US)
  Receive Date: 20130129
  Receipt Date: 20130129
  Transmission Date: 20140127
  Serious: No
  Sender: FDA-Public Use
  Company Number: US-ABBOTT-12P-163-0950000-00

PATIENT
  Age: 31 None
  Sex: Female

DRUGS (1)
  1. HUMIRA 40 MG/0.8 ML PEN [Suspect]
     Indication: RHEUMATOID ARTHRITIS
     Dosage: USE ERROR
     Dates: start: 20120617

REACTIONS (2)
  - Wrong technique in drug usage process [Unknown]
  - Injection site reaction [Recovered/Resolved]
